FAERS Safety Report 16159056 (Version 2)
Quarter: 2019Q2

REPORT INFORMATION
  Report Type: Spontaneous
  Country: US (occurrence: US)
  Receive Date: 20190404
  Receipt Date: 20190507
  Transmission Date: 20190711
  Serious: Yes (Other)
  Sender: FDA-Public Use
  Company Number: US-SA-2019SA091854

PATIENT
  Age: 64 Year
  Sex: Female

DRUGS (2)
  1. NOVOLIN [Concomitant]
     Active Substance: INSULIN HUMAN
     Dosage: UNK UNK, TID
     Route: 065
  2. LANTUS SOLOSTAR [Suspect]
     Active Substance: INSULIN GLARGINE
     Indication: TYPE 2 DIABETES MELLITUS
     Dosage: 2 YEARS AGO
     Route: 065

REACTIONS (21)
  - Energy increased [Unknown]
  - Liver disorder [Unknown]
  - Renal disorder [Unknown]
  - Renal neoplasm [Unknown]
  - Chronic obstructive pulmonary disease [Unknown]
  - Device operational issue [Unknown]
  - Crohn^s disease [Unknown]
  - Cerebral disorder [Unknown]
  - Gastritis [Unknown]
  - Dyspepsia [Unknown]
  - Muscle twitching [Unknown]
  - Abdominal hernia [Unknown]
  - Abdominal pain [Unknown]
  - Intentional dose omission [Unknown]
  - Paralysis [Unknown]
  - Neuropathy peripheral [Unknown]
  - Insomnia [Unknown]
  - Lung disorder [Unknown]
  - Injection site pain [Unknown]
  - Blood glucose increased [Unknown]
  - Product dose omission [Unknown]
